FAERS Safety Report 15244968 (Version 1)
Quarter: 2018Q3

REPORT INFORMATION
  Report Type: Report from Study
  Country: US (occurrence: US)
  Receive Date: 20180806
  Receipt Date: 20180806
  Transmission Date: 20181010
  Serious: Yes (Hospitalization, Other)
  Sender: FDA-Public Use
  Company Number: US-GILEAD-2018-0352612

PATIENT
  Age: 64 Year
  Sex: Female

DRUGS (4)
  1. AMBRISENTAN [Suspect]
     Active Substance: AMBRISENTAN
     Indication: PULMONARY ARTERIAL HYPERTENSION
     Dosage: 10 MG, QD
     Route: 065
     Dates: start: 20151121
  2. METHOTREXATE. [Concomitant]
     Active Substance: METHOTREXATE
  3. ADCIRCA [Concomitant]
     Active Substance: TADALAFIL
  4. ENBREL [Concomitant]
     Active Substance: ETANERCEPT

REACTIONS (2)
  - Pneumonia [Unknown]
  - Pulmonary arterial hypertension [Unknown]
